FAERS Safety Report 4505466-4 (Version None)
Quarter: 2004Q4

REPORT INFORMATION
  Report Type: 
  Country: None (occurrence: None)
  Receive Date: 20041118
  Receipt Date: 20041118
  Transmission Date: 20050328
  Serious: Yes (Hospitalization)
  Sender: FDA-Public Use
  Company Number: None

PATIENT
  Sex: Female
  Weight: 77.1115 kg

DRUGS (21)
  1. CLOZARIL [Suspect]
     Indication: BIPOLAR DISORDER
     Dosage: TWO DAILY
     Dates: start: 20041016, end: 20041108
  2. PRILOSEC [Concomitant]
  3. OMEPRAZOLE [Concomitant]
  4. SEROQUEL [Concomitant]
  5. QUETIAPINE FUMARATE [Concomitant]
  6. ABILIFY [Concomitant]
  7. ARIPIPRAZOLE [Concomitant]
  8. IMITREX [Concomitant]
  9. SUMATRIPTAN SUCCINATE [Concomitant]
  10. HYDROCODONE GF [Concomitant]
  11. HYDROCODONE-GUAIFENESIN [Concomitant]
  12. CLOZARIL [Concomitant]
  13. CLOZAPINE [Concomitant]
  14. SYNTHROID [Concomitant]
  15. LEVOTHYROXINE SODIUM [Concomitant]
  16. IMITREX [Concomitant]
  17. SUMATRIPTAN SUCCINATE [Concomitant]
  18. PHENERGAN TAB [Concomitant]
  19. PROMETHAZINE HCL [Concomitant]
  20. CIPRO TAB [Concomitant]
  21. CIPROFLOXACIN HCL [Concomitant]

REACTIONS (2)
  - CHOLECYSTITIS [None]
  - HEPATITIS [None]
